FAERS Safety Report 20111834 (Version 1)
Quarter: 2021Q4

REPORT INFORMATION
  Report Type: Spontaneous
  Country: None (occurrence: US)
  Receive Date: 20211125
  Receipt Date: 20211125
  Transmission Date: 20220303
  Serious: No
  Sender: FDA-Public Use
  Company Number: US-Ajanta Pharma USA Inc.-2122311

PATIENT
  Sex: Male

DRUGS (1)
  1. SILDENAFIL CITRATE [Suspect]
     Active Substance: SILDENAFIL CITRATE
     Indication: Product used for unknown indication
     Dates: start: 201912

REACTIONS (2)
  - Drug ineffective [Unknown]
  - Dyspepsia [Unknown]

NARRATIVE: CASE EVENT DATE: 20210101
